FAERS Safety Report 16718032 (Version 1)
Quarter: 2019Q3

REPORT INFORMATION
  Report Type: Report from Study
  Country: BR (occurrence: BR)
  Receive Date: 20190819
  Receipt Date: 20190819
  Transmission Date: 20191005
  Serious: Yes (Life-Threatening, Other)
  Sender: FDA-Public Use
  Company Number: PHHY2019BR192091

PATIENT
  Sex: Female

DRUGS (2)
  1. ENTRESTO [Suspect]
     Active Substance: SACUBITRIL\VALSARTAN
     Indication: CARDIAC FAILURE
     Dosage: 2 DF (49/51MG IN THE MORNING ), QD
     Route: 065
  2. ENTRESTO [Suspect]
     Active Substance: SACUBITRIL\VALSARTAN
     Dosage: 1 DF, QD (49/51MG IN THE MORNING AND 97MG / 103MG  IN THE NIGHT)
     Route: 065

REACTIONS (15)
  - Cataract [Unknown]
  - Hyperhidrosis [Unknown]
  - Thirst [Unknown]
  - Visual impairment [Unknown]
  - Feeling abnormal [Unknown]
  - Vomiting [Unknown]
  - Abdominal pain upper [Unknown]
  - Balance disorder [Unknown]
  - Insomnia [Unknown]
  - Oropharyngeal discomfort [Unknown]
  - Malaise [Unknown]
  - Inappropriate schedule of product administration [Unknown]
  - Hypoaesthesia oral [Unknown]
  - Glucose tolerance impaired [Unknown]
  - Headache [Unknown]
